FAERS Safety Report 11792502 (Version 1)
Quarter: 2015Q4

REPORT INFORMATION
  Report Type: Spontaneous
  Country: IT (occurrence: IT)
  Receive Date: 20151202
  Receipt Date: 20151202
  Transmission Date: 20160305
  Serious: Yes (Hospitalization)
  Sender: FDA-Public Use
  Company Number: PHHY2015IT152670

PATIENT
  Age: 55 Year
  Sex: Female
  Weight: 80 kg

DRUGS (10)
  1. CEFAMEZIN//CEFAZOLIN SODIUM [Interacting]
     Active Substance: CEFAZOLIN SODIUM
     Indication: PROPHYLAXIS
     Dosage: 2 G, ONCE/SINGLE
     Route: 030
     Dates: start: 20151012, end: 20151012
  2. FENTANYL. [Interacting]
     Active Substance: FENTANYL
     Indication: PRODUCT USED FOR UNKNOWN INDICATION
     Dosage: 250 UG, ONCE/SINGLE
     Route: 065
     Dates: start: 20151012, end: 20151012
  3. CISATRACURIUM BESYLATE. [Interacting]
     Active Substance: CISATRACURIUM BESYLATE
     Dosage: 25 MG/H, PRN
     Route: 042
     Dates: start: 20151012, end: 20151012
  4. UGUROL [Interacting]
     Active Substance: TRANEXAMIC ACID
     Dosage: 250 MG/H, UNK
     Route: 065
     Dates: start: 20151012
  5. PROPOFOL. [Interacting]
     Active Substance: PROPOFOL
     Dosage: 400 MG, PRN
     Route: 042
     Dates: start: 20151012, end: 20151012
  6. UGUROL [Interacting]
     Active Substance: TRANEXAMIC ACID
     Indication: PRODUCT USED FOR UNKNOWN INDICATION
     Dosage: 1 G, ONCE/SINGLE
     Route: 065
     Dates: start: 20151012, end: 20151012
  7. PROPOFOL. [Interacting]
     Active Substance: PROPOFOL
     Dosage: 400 MG, PRN
     Route: 042
     Dates: start: 20151012, end: 20151012
  8. CISATRACURIUM BESYLATE. [Suspect]
     Active Substance: CISATRACURIUM BESYLATE
     Indication: PRODUCT USED FOR UNKNOWN INDICATION
     Dosage: 25 MG
     Route: 065
     Dates: start: 20151012
  9. PROPOFOL. [Interacting]
     Active Substance: PROPOFOL
     Indication: GENERAL ANAESTHESIA
     Dosage: 150 MG
     Route: 065
     Dates: start: 20151012
  10. CISATRACURIUM BESYLATE. [Interacting]
     Active Substance: CISATRACURIUM BESYLATE
     Dosage: 25 MG, PRN
     Route: 042
     Dates: start: 20151012, end: 20151012

REACTIONS (4)
  - Drug interaction [Unknown]
  - Lung disorder [None]
  - Vasodilatation [Recovered/Resolved]
  - Blood pressure decreased [Recovered/Resolved]

NARRATIVE: CASE EVENT DATE: 20151012
